FAERS Safety Report 5810785-5 (Version None)
Quarter: 2008Q3

REPORT INFORMATION
  Report Type: 
  Country: None (occurrence: None)
  Receive Date: 20080715
  Receipt Date: 20080703
  Transmission Date: 20090109
  Serious: Yes (Hospitalization)
  Sender: FDA-Public Use
  Company Number: AU-GENENTECH-264218

PATIENT
  Sex: Female

DRUGS (3)
  1. HERCEPTIN [Suspect]
     Indication: BREAST NEOPLASM
     Route: 042
  2. XELODA [Suspect]
     Indication: BREAST NEOPLASM
     Dosage: 400 MG, UNK
     Route: 065
  3. NAVELBINE [Suspect]
     Indication: BREAST NEOPLASM
     Dosage: 80 MG/M2, UNK
     Route: 048
     Dates: start: 20040908

REACTIONS (2)
  - FEBRILE NEUTROPENIA [None]
  - STOMATITIS [None]
